FAERS Safety Report 7823389-X (Version None)
Quarter: 2011Q4

REPORT INFORMATION
  Report Type: 
  Country: None (occurrence: None)
  Receive Date: 20111014
  Receipt Date: 20111005
  Transmission Date: 20120403
  Serious: Yes (Other)
  Sender: FDA-Public Use
  Company Number: 1000024540

PATIENT
  Age: 41 Year
  Sex: Female

DRUGS (8)
  1. TRAZODONE (TRAZODONE) (TRAZODONE) [Concomitant]
  2. ALLEGRA (FEXOFENADINE HYDROCHLORIDE) (FEXOFENADINE HYDROCHLORIDE) [Concomitant]
  3. VIIBRYD [Suspect]
     Indication: DEPRESSION
     Dosage: 40 MG (40 MG, 1 IN 1 D), ORAL
     Route: 048
     Dates: start: 20110913, end: 20111001
  4. LAMICTAL [Concomitant]
  5. ABILIFY (ARIPIPRAZOLE) (ARIPIPRAZOLE) [Concomitant]
  6. VIIBRYD [Suspect]
     Indication: DEPRESSION
     Dosage: 10 MG (10 MG , 1 IN 1 D) ORAL; 20 MG (20 MG, 1 IN 1 D), ORAL
     Route: 048
     Dates: start: 20110906, end: 20110912
  7. VIIBRYD [Suspect]
     Indication: DEPRESSION
     Dosage: 10 MG (10 MG , 1 IN 1 D) ORAL; 20 MG (20 MG, 1 IN 1 D), ORAL
     Route: 048
     Dates: start: 20110830, end: 20110905
  8. NAPROXEN [Concomitant]

REACTIONS (5)
  - SUICIDAL IDEATION [None]
  - DRUG INEFFECTIVE [None]
  - DIZZINESS [None]
  - MIGRAINE [None]
  - CRYING [None]
